FAERS Safety Report 9862510 (Version 1)
Quarter: 2014Q1

REPORT INFORMATION
  Report Type: Spontaneous
  Country: US (occurrence: US)
  Receive Date: 20140203
  Receipt Date: 20140203
  Transmission Date: 20141002
  Serious: Yes (Other)
  Sender: FDA-Public Use
  Company Number: CHPA2014US001347

PATIENT
  Age: 83 Year
  Sex: Female

DRUGS (3)
  1. TRIAMINIC THIN STRIPS NIGHTTIME COUGH + RUNNY NOSE [Suspect]
     Indication: COUGH
     Dosage: 1 DF, PRN
     Route: 048
  2. TRIAMINIC THIN STRIPS NIGHTTIME COUGH + RUNNY NOSE [Suspect]
     Indication: NASOPHARYNGITIS
  3. TRIAMINIC NIGHT TIME COUGH + RUNNY NOSE [Suspect]
     Dosage: UNK UNK

REACTIONS (4)
  - Asthma [Recovered/Resolved]
  - Bronchitis [Recovered/Resolved]
  - Expired drug administered [Unknown]
  - Therapeutic response unexpected [Unknown]
